FAERS Safety Report 25584942 (Version 1)
Quarter: 2025Q3

REPORT INFORMATION
  Report Type: Spontaneous
  Country: US (occurrence: US)
  Receive Date: 20250721
  Receipt Date: 20250721
  Transmission Date: 20251021
  Serious: No
  Sender: Kenvue
  Company Number: US-KENVUE-20250704214

PATIENT

DRUGS (1)
  1. ZYRTEC [Suspect]
     Active Substance: CETIRIZINE HYDROCHLORIDE
     Indication: Product used for unknown indication
     Dosage: UNK UNK, TWICE A DAY (BEFORE BED)
     Route: 065

REACTIONS (4)
  - Sedation [Unknown]
  - Fatigue [Unknown]
  - Overdose [Unknown]
  - Inappropriate schedule of product administration [Unknown]
